FAERS Safety Report 23912501 (Version 1)
Quarter: 2024Q2

REPORT INFORMATION
  Report Type: Report from Study
  Country: US (occurrence: US)
  Receive Date: 20240528
  Receipt Date: 20240528
  Transmission Date: 20240716
  Serious: Yes (Other)
  Sender: FDA-Public Use
  Company Number: US-ABBVIE-5777022

PATIENT
  Sex: Female

DRUGS (1)
  1. HUMIRA [Suspect]
     Active Substance: ADALIMUMAB
     Indication: Colitis ulcerative
     Route: 058

REACTIONS (7)
  - Foot deformity [Unknown]
  - Faecal calprotectin increased [Recovering/Resolving]
  - Surgical failure [Not Recovered/Not Resolved]
  - Gallbladder operation [Recovered/Resolved]
  - Diarrhoea [Unknown]
  - Large intestinal ulcer [Unknown]
  - Pain in extremity [Unknown]

NARRATIVE: CASE EVENT DATE: 20220101
